FAERS Safety Report 8205810-0 (Version None)
Quarter: 2012Q1

REPORT INFORMATION
  Report Type: 
  Country: None (occurrence: None)
  Receive Date: 20120313
  Receipt Date: 20120302
  Transmission Date: 20120608
  Serious: Yes (Hospitalization)
  Sender: FDA-Public Use
  Company Number: US-VIROPHARMA INCORPORATED-20120224CINRY2679

PATIENT
  Sex: Male
  Weight: 104.78 kg

DRUGS (3)
  1. PRILOSEC [Concomitant]
     Indication: PRODUCT USED FOR UNKNOWN INDICATION
     Route: 048
  2. DILANTIN [Concomitant]
     Indication: CONVULSION
     Route: 048
     Dates: end: 20120220
  3. CINRYZE [Suspect]
     Indication: HEREDITARY ANGIOEDEMA
     Dates: start: 20070101

REACTIONS (3)
  - BRONCHOPNEUMONIA [None]
  - ILEUS [None]
  - BRONCHITIS [None]
